FAERS Safety Report 13086560 (Version 2)
Quarter: 2017Q1

REPORT INFORMATION
  Report Type: Report from Study
  Country: None (occurrence: US)
  Receive Date: 20170104
  Receipt Date: 20170217
  Transmission Date: 20170428
  Serious: Yes (Hospitalization)
  Sender: FDA-Public Use
  Company Number: US-ABBVIE-16P-163-1826938-00

PATIENT
  Age: 31 Year
  Sex: Male

DRUGS (3)
  1. INSULIN PUMP [Concomitant]
     Active Substance: INSULIN NOS
     Indication: TYPE 1 DIABETES MELLITUS
     Route: 050
  2. VIEKIRA PAK [Suspect]
     Active Substance: DASABUVIR\OMBITASVIR\PARITAPREVIR\RITONAVIR
     Indication: HEPATITIS C
     Dosage: 3 TABLETS IN THE AM;?1 TABLET IN THE PM
     Route: 048
     Dates: start: 20161209
  3. RIBAVIRIN. [Concomitant]
     Active Substance: RIBAVIRIN
     Indication: PRODUCT USED FOR UNKNOWN INDICATION
     Route: 048
     Dates: start: 20161222

REACTIONS (1)
  - Blood glucose abnormal [Recovered/Resolved]

NARRATIVE: CASE EVENT DATE: 20161220
